FAERS Safety Report 5938592-3 (Version None)
Quarter: 2008Q4

REPORT INFORMATION
  Report Type: 
  Country: None (occurrence: None)
  Receive Date: 20081103
  Receipt Date: 20081023
  Transmission Date: 20090506
  Serious: Yes (Life-Threatening, Other)
  Sender: FDA-Public Use
  Company Number: US-JNJFOC-20080604352

PATIENT
  Sex: Female
  Weight: 41.4 kg

DRUGS (2)
  1. REMICADE [Suspect]
     Indication: COLITIS ULCERATIVE
     Route: 042
  2. REMICADE [Suspect]
     Indication: CROHN'S DISEASE
     Route: 042

REACTIONS (8)
  - DRUG HYPERSENSITIVITY [None]
  - DYSPNOEA [None]
  - HEART RATE DECREASED [None]
  - INFUSION RELATED REACTION [None]
  - PULSE ABSENT [None]
  - RESPIRATORY ARREST [None]
  - UNRESPONSIVE TO STIMULI [None]
  - URTICARIA [None]
